FAERS Safety Report 10151211 (Version 1)
Quarter: 2014Q2

REPORT INFORMATION
  Report Type: Spontaneous
  Country: US (occurrence: US)
  Receive Date: 20140502
  Receipt Date: 20140502
  Transmission Date: 20141212
  Serious: No
  Sender: FDA-Public Use
  Company Number: US-ASTRAZENECA-2013SE87848

PATIENT
  Age: 56 Year
  Sex: Male

DRUGS (7)
  1. PRILOSEC OTC [Suspect]
     Route: 048
     Dates: start: 20131125, end: 20131126
  2. METOPROLOL TARTRATE [Concomitant]
     Dosage: UNKNOWN
  3. PENICILLIN [Concomitant]
  4. CALCIUM ACETATE [Concomitant]
     Dosage: UNKNWN
  5. LASIX [Concomitant]
     Dosage: UNKNOWN
  6. GLIPIZIDE [Concomitant]
     Dosage: UNKNOWN
  7. LISINOPRIL [Concomitant]
     Dosage: UNKNOWN

REACTIONS (1)
  - Feeling jittery [Not Recovered/Not Resolved]
